FAERS Safety Report 7907588-4 (Version None)
Quarter: 2011Q4

REPORT INFORMATION
  Report Type: 
  Country: None (occurrence: None)
  Receive Date: 20111110
  Receipt Date: 20111103
  Transmission Date: 20120403
  Serious: Yes (Other)
  Sender: FDA-Public Use
  Company Number: PHHY2011VE098615

PATIENT
  Sex: Female

DRUGS (11)
  1. ZOLEDRONOC ACID [Suspect]
     Indication: OSTEOPOROSIS
     Dosage: 5 MG, UNK
     Route: 042
     Dates: start: 20110101
  2. CRESTOR [Concomitant]
     Indication: BLOOD CHOLESTEROL
     Dosage: 1 DF, QD
     Route: 048
  3. TRAMADOL HCL [Concomitant]
     Indication: PAIN
  4. VITAMIN B COMPLEX CAP [Concomitant]
     Indication: NERVOUS SYSTEM DISORDER
     Dosage: 1 DF, QD
     Route: 048
  5. CALCIMAGON-D3 [Concomitant]
     Dosage: 1 DF, QD
     Route: 048
  6. CORAZEM [Concomitant]
     Indication: CARDIAC DISORDER
  7. SOMAZINE [Concomitant]
     Indication: NERVOUS SYSTEM DISORDER
     Dosage: 1 DF, QD
     Route: 048
  8. DAFLON (DIOSMIN) [Concomitant]
     Dosage: 500 MG, UNK
     Route: 048
  9. LEXAPRO [Concomitant]
     Indication: ANTIDEPRESSANT THERAPY
     Dosage: 1 DF, QD
     Route: 048
  10. OMEPRAZOLE [Concomitant]
     Indication: GASTRITIS
     Dosage: 1 DF, QD
  11. GLUCOSAMINE [Concomitant]
     Indication: ARTHRALGIA
     Dosage: 2 DF, QD
     Route: 048

REACTIONS (4)
  - FALL [None]
  - SPINAL DISORDER [None]
  - NERVE COMPRESSION [None]
  - BONE PAIN [None]
